FAERS Safety Report 4736261-9 (Version None)
Quarter: 2005Q3

REPORT INFORMATION
  Report Type: 
  Country: None (occurrence: None)
  Receive Date: 20050805
  Receipt Date: 20050805
  Transmission Date: 20060218
  Serious: Yes (Life-Threatening)
  Sender: FDA-Public Use
  Company Number: None

PATIENT
  Sex: Male
  Weight: 52 kg

DRUGS (9)
  1. FLEETS PHOSPHOSODA  FLEETS [Suspect]
     Indication: COLONOSCOPY
     Dosage: 45 ML HS, THEN IN AM ORAL  , 45 ML EXTRA DOSE ORAL
     Route: 048
     Dates: start: 20050714, end: 20050715
  2. FLEETS PHOSPHOSODA  FLEETS [Suspect]
     Indication: PREOPERATIVE CARE
     Dosage: 45 ML HS, THEN IN AM ORAL  , 45 ML EXTRA DOSE ORAL
     Route: 048
     Dates: start: 20050714, end: 20050715
  3. DESYREL [Concomitant]
  4. KLONOPIN [Concomitant]
  5. LASIX [Concomitant]
  6. POTASSIUM CHLORIDE [Concomitant]
  7. XANAX [Concomitant]
  8. QUESTRAN [Concomitant]
  9. NEUTRAPHOS [Concomitant]

REACTIONS (2)
  - HAEMODIALYSIS [None]
  - RENAL FAILURE ACUTE [None]
